FAERS Safety Report 4362228-9 (Version None)
Quarter: 2004Q2

REPORT INFORMATION
  Report Type: 
  Country: None (occurrence: None)
  Receive Date: 20040517
  Receipt Date: 20001226
  Transmission Date: 20050107
  Serious: Yes (Hospitalization)
  Sender: FDA-Public Use
  Company Number: THQ2004A00448

PATIENT
  Sex: Female

DRUGS (12)
  1. PIOGLITAZONE HCL [Suspect]
     Dosage: 1 D, PER ORAL
     Route: 048
  2. ATENOLOL [Suspect]
     Dosage: SEE IMAGE
     Route: 048
     Dates: start: 19991230, end: 20000719
  3. ATENOLOL [Suspect]
     Dosage: SEE IMAGE
     Route: 048
     Dates: start: 20000720
  4. ATENOLOL [Suspect]
  5. HYDROCHLOROTHIAZIDE [Suspect]
     Dosage: 1 D
     Dates: start: 20000224
  6. DIGOXIN [Suspect]
     Dosage: 1 D, PER ORAL
     Route: 048
  7. PLAVIX [Suspect]
     Dosage: 1 D, PER ORAL
     Route: 048
  8. ISOSORBIDE (ISOSORBIDE) [Suspect]
     Dosage: 1 D, PER ORAL
     Route: 048
  9. LIPITOR [Suspect]
     Dosage: 1 D, PER ORAL
     Route: 048
  10. AZMACORT [Suspect]
     Dosage: 2 PUFF, 2 IN 1 D
  11. PRENTIL NEBULIZER (SALBUTAMOL) [Suspect]
     Dosage: AS REQUIRED
  12. NPH PURIFIED PORK ISOPHANE INSULIN [Suspect]

REACTIONS (7)
  - ASTHENIA [None]
  - BLOOD PRESSURE DIASTOLIC INCREASED [None]
  - BLOOD PRESSURE SYSTOLIC INCREASED [None]
  - BODY TEMPERATURE INCREASED [None]
  - DIZZINESS [None]
  - HEADACHE [None]
  - RESPIRATORY RATE INCREASED [None]
